FAERS Safety Report 6645781-1 (Version None)
Quarter: 2010Q1

REPORT INFORMATION
  Report Type: 
  Country: None (occurrence: None)
  Receive Date: 20100309
  Receipt Date: 20100122
  Transmission Date: 20100710
  Serious: Yes (Other)
  Sender: FDA-Public Use
  Company Number: 2010SP004833

PATIENT
  Age: 47 Year
  Sex: Female

DRUGS (1)
  1. SAPHRIS [Suspect]
     Indication: BIPOLAR DISORDER
     Dosage: 15 MG; QD;

REACTIONS (3)
  - AGITATION [None]
  - INSOMNIA [None]
  - PSYCHOTIC DISORDER [None]
